FAERS Safety Report 9709365 (Version 2)
Quarter: 2013Q4

REPORT INFORMATION
  Report Type: Spontaneous
  Country: US (occurrence: US)
  Receive Date: 20131126
  Receipt Date: 20131128
  Transmission Date: 20140711
  Serious: No
  Sender: FDA-Public Use
  Company Number: US-009507513-1311USA010006

PATIENT
  Sex: Female

DRUGS (2)
  1. PROVENTIL [Suspect]
     Indication: ASTHMA
     Dosage: DOSE/FREQUENCY: 2 PUFFS EVERY 4-6 HOURS AS NEEDED, PRN.
     Route: 055
     Dates: start: 20131022
  2. ROBITUSSIN AC (CODEINE PHOSPHATE (+) GUAIFENESIN) [Concomitant]

REACTIONS (5)
  - Anxiety [Recovered/Resolved]
  - Frustration [Recovered/Resolved]
  - Anxiety [Recovered/Resolved]
  - Drug dose omission [Unknown]
  - Product quality issue [Unknown]
